FAERS Safety Report 6064879-2 (Version None)
Quarter: 2009Q1

REPORT INFORMATION
  Report Type: 
  Country: None (occurrence: None)
  Receive Date: 20090203
  Receipt Date: 20090203
  Transmission Date: 20090719
  Serious: Yes (Other)
  Sender: FDA-Public Use
  Company Number: None

PATIENT
  Age: 48 Year
  Sex: Female

DRUGS (2)
  1. APIDRA [Suspect]
     Indication: DIABETES MELLITUS
     Dosage: USE UP TO 60 UNITS DAILY VIA INSULIN  PUMP
  2. INSULIN PUMP [Concomitant]

REACTIONS (1)
  - PRODUCT QUALITY ISSUE [None]
